FAERS Safety Report 11173278 (Version 2)
Quarter: 2015Q2

REPORT INFORMATION
  Report Type: Report from Study
  Country: HN (occurrence: HN)
  Receive Date: 20150608
  Receipt Date: 20150619
  Transmission Date: 20150821
  Serious: Yes (Other)
  Sender: FDA-Public Use
  Company Number: PHHY2015HN029918

PATIENT
  Age: 26 Year
  Sex: Male
  Weight: 52.7 kg

DRUGS (3)
  1. TASIGNA [Suspect]
     Active Substance: NILOTINIB
     Indication: CHRONIC MYELOID LEUKAEMIA
     Dosage: 400 MG, BID
     Route: 065
     Dates: start: 20150204
  2. TASIGNA [Suspect]
     Active Substance: NILOTINIB
     Dosage: 400 MG BID
     Route: 065
  3. TASIGNA [Suspect]
     Active Substance: NILOTINIB
     Dosage: 400 MG, QD
     Route: 065

REACTIONS (16)
  - Liver disorder [Recovered/Resolved]
  - Skin hyperpigmentation [Recovered/Resolved]
  - Dry skin [Recovered/Resolved]
  - Blood bilirubin increased [Recovered/Resolved]
  - Cholecystitis [Unknown]
  - Gallbladder disorder [Recovered/Resolved]
  - Nausea [Recovered/Resolved]
  - Pyrexia [Recovered/Resolved]
  - Hepatosplenomegaly [Recovered/Resolved]
  - Ultrasound kidney abnormal [Recovered/Resolved]
  - Platelet count increased [Recovered/Resolved]
  - Hypersensitivity [Recovered/Resolved]
  - Fatigue [Recovered/Resolved]
  - Abdominal pain upper [Recovered/Resolved]
  - White blood cell count increased [Recovered/Resolved]
  - Therapeutic response decreased [Unknown]

NARRATIVE: CASE EVENT DATE: 20150504
